FAERS Safety Report 6653385-X (Version None)
Quarter: 2010Q1

REPORT INFORMATION
  Report Type: 
  Country: None (occurrence: None)
  Receive Date: 20100326
  Receipt Date: 20100317
  Transmission Date: 20100710
  Serious: Yes (Hospitalization, Other)
  Sender: FDA-Public Use
  Company Number: PHHY2010GB17594

PATIENT
  Age: 78 Year
  Sex: Male

DRUGS (8)
  1. CARBAMAZEPINE [Suspect]
     Indication: EPILEPSY
     Dosage: 100 MG, UNK
     Route: 048
     Dates: start: 20100117, end: 20100222
  2. CLOPIDOGREL [Suspect]
     Indication: CEREBROVASCULAR ACCIDENT PROPHYLAXIS
     Dosage: UNK
     Dates: start: 20100117, end: 20100224
  3. ASPIRIN [Concomitant]
     Dosage: 75 MG, QD
  4. ATENOLOL [Concomitant]
     Dosage: 25 MG, QD
  5. GLYCERYL TRINITRATE [Concomitant]
     Dosage: 2 DF, PRN
  6. ISOSORBIDE MONONITRATE [Concomitant]
     Dosage: 20 MG, BID
  7. PERINDOPRIL [Concomitant]
     Dosage: 2 MG, BID
  8. SIMVASTATIN [Concomitant]
     Dosage: 20 MG, QD

REACTIONS (2)
  - ANISOCYTOSIS [None]
  - STEVENS-JOHNSON SYNDROME [None]
